FAERS Safety Report 7144757-8 (Version None)
Quarter: 2010Q4

REPORT INFORMATION
  Report Type: 
  Country: None (occurrence: None)
  Receive Date: 20101112
  Receipt Date: 20100922
  Transmission Date: 20110411
  Serious: No
  Sender: FDA-Public Use
  Company Number: 1000016425

PATIENT
  Age: 32 Year
  Sex: Male

DRUGS (4)
  1. SAVELLA [Suspect]
     Indication: FIBROMYALGIA
     Dosage: (12.5 MG (12.5 MG, 1 IN1 D) ORAL) (25 MG (12.5 MG, 2 IN 1 D) ORAL) (50 MG (25 MG, 2 IN 1 D) ORAL)
     Route: 048
     Dates: start: 20100908, end: 20100908
  2. SAVELLA [Suspect]
     Indication: FIBROMYALGIA
     Dosage: (12.5 MG (12.5 MG, 1 IN1 D) ORAL) (25 MG (12.5 MG, 2 IN 1 D) ORAL) (50 MG (25 MG, 2 IN 1 D) ORAL)
     Route: 048
     Dates: start: 20100909, end: 20100910
  3. SAVELLA [Suspect]
     Indication: FIBROMYALGIA
     Dosage: (12.5 MG (12.5 MG, 1 IN1 D) ORAL) (25 MG (12.5 MG, 2 IN 1 D) ORAL) (50 MG (25 MG, 2 IN 1 D) ORAL)
     Route: 048
     Dates: start: 20100911, end: 20100914
  4. SAVELLA [Suspect]
     Indication: FIBROMYALGIA
     Dosage: (12.5 MG (12.5 MG, 1 IN1 D) ORAL) (25 MG (12.5 MG, 2 IN 1 D) ORAL) (50 MG (25 MG, 2 IN 1 D) ORAL)
     Route: 048
     Dates: start: 20100915

REACTIONS (2)
  - ABDOMINAL DISCOMFORT [None]
  - NAUSEA [None]
